FAERS Safety Report 14696208 (Version 1)
Quarter: 2018Q1

REPORT INFORMATION
  Report Type: Spontaneous
  Country: US (occurrence: US)
  Receive Date: 20180329
  Receipt Date: 20180329
  Transmission Date: 20180509
  Serious: No
  Sender: FDA-Public Use
  Company Number: US-SA-2018SA061443

PATIENT
  Age: 68 Year
  Sex: Male

DRUGS (1)
  1. ALLEGRA-D [Suspect]
     Active Substance: FEXOFENADINE\PSEUDOEPHEDRINE
     Indication: HYPERSENSITIVITY
     Dosage: DOSE-180/240 MG
     Route: 048
     Dates: start: 20180227

REACTIONS (2)
  - Insomnia [Unknown]
  - Wrong technique in product usage process [Unknown]
